FAERS Safety Report 7985086-X (Version None)
Quarter: 2011Q4

REPORT INFORMATION
  Report Type: 
  Country: None (occurrence: None)
  Receive Date: 20111213
  Receipt Date: 20111207
  Transmission Date: 20120403
  Serious: Yes (Hospitalization)
  Sender: FDA-Public Use
  Company Number: DSA_48343_2011

PATIENT
  Sex: Female

DRUGS (7)
  1. ENALAPRIL MALEATE [Suspect]
     Indication: PRODUCT USED FOR UNKNOWN INDICATION
     Dosage: (DF)
  2. GLICLAZIDE 9GLICLAZIDE) 60 MG [Suspect]
     Indication: TYPE 2 DIABETES MELLITUS
     Dosage: (DF)
  3. ACE INHIBITORS [Concomitant]
  4. SAXAGLIPTIN 9SAXAGLIPTIN) [Suspect]
     Indication: TYPE 2 DIABETES MELLITUS
     Dosage: (DF)
     Dates: start: 20110209
  5. STATINS [Concomitant]
  6. DIURETICS [Concomitant]
  7. PLACEBO [Suspect]
     Indication: TYPE 2 DIABETES MELLITUS
     Dosage: (DF)
     Dates: start: 20110209

REACTIONS (3)
  - CHOLELITHIASIS [None]
  - PANCREATITIS [None]
  - VOMITING [None]
